FAERS Safety Report 15729245 (Version 1)
Quarter: 2018Q4

REPORT INFORMATION
  Report Type: Spontaneous
  Country: TR (occurrence: TR)
  Receive Date: 20181217
  Receipt Date: 20181217
  Transmission Date: 20190205
  Serious: Yes (Other)
  Sender: FDA-Public Use
  Company Number: TR-009507513-1812TUR006491

PATIENT
  Age: 34 Year
  Sex: Female

DRUGS (1)
  1. DESOGESTREL (+) ETHINYL ESTRADIOL [Suspect]
     Active Substance: DESOGESTREL\ETHINYL ESTRADIOL
     Indication: CONTRACEPTION
     Dosage: 0.015/0.03 MG DAILY
     Route: 048

REACTIONS (3)
  - Abortion spontaneous [Recovered/Resolved]
  - Pregnancy on oral contraceptive [Recovered/Resolved]
  - Unintended pregnancy [Recovered/Resolved]
